FAERS Safety Report 16363109 (Version 1)
Quarter: 2019Q2

REPORT INFORMATION
  Report Type: Spontaneous
  Country: US (occurrence: US)
  Receive Date: 20190528
  Receipt Date: 20190528
  Transmission Date: 20190711
  Serious: Yes (Disabling, Other)
  Sender: FDA-Public Use
  Company Number: US-AMNEAL PHARMACEUTICALS-2019AMN00593

PATIENT

DRUGS (3)
  1. GABAPENTIN. [Suspect]
     Active Substance: GABAPENTIN
     Indication: HYPOAESTHESIA
     Dosage: 1 CAPSULES, 1X/DAY
     Route: 048
     Dates: start: 20190327, end: 20190327
  2. GABAPENTIN. [Suspect]
     Active Substance: GABAPENTIN
     Dosage: 2 CAPSULES, 1X/DAY
     Route: 048
     Dates: start: 20190328, end: 20190328
  3. GABAPENTIN. [Suspect]
     Active Substance: GABAPENTIN
     Dosage: 3 CAPSULES, 1X/DAY
     Route: 048
     Dates: start: 20190329, end: 20190329

REACTIONS (2)
  - Blindness unilateral [Not Recovered/Not Resolved]
  - Vision blurred [Not Recovered/Not Resolved]

NARRATIVE: CASE EVENT DATE: 20190329
